FAERS Safety Report 10085908 (Version 1)
Quarter: 2014Q2

REPORT INFORMATION
  Report Type: Spontaneous
  Country: US (occurrence: US)
  Receive Date: 20140418
  Receipt Date: 20140418
  Transmission Date: 20141212
  Serious: No
  Sender: FDA-Public Use
  Company Number: US-B.I. PHARMACEUTICALS,INC./RIDGEFIELD-2014-BI-16492BP

PATIENT
  Age: 78 Year
  Sex: Male

DRUGS (2)
  1. COMBIVENT [Suspect]
     Indication: ASTHMA
     Dosage: FORMULATION: RESPIMAT INHALATION SPRAYSTRENGTH: 20 MCG / 100 MCG;
     Route: 055
     Dates: start: 201310
  2. ADVAIR [Concomitant]
     Indication: ASTHMA
     Route: 055
     Dates: start: 200012

REACTIONS (1)
  - Off label use [Not Recovered/Not Resolved]
